FAERS Safety Report 5714953-2 (Version None)
Quarter: 2008Q2

REPORT INFORMATION
  Report Type: 
  Country: None (occurrence: None)
  Receive Date: 20080423
  Receipt Date: 20080414
  Transmission Date: 20081010
  Serious: Yes (Other)
  Sender: FDA-Public Use
  Company Number: BR-ROCHE-559123

PATIENT
  Age: 36 Year
  Sex: Female
  Weight: 61 kg

DRUGS (3)
  1. RIVOTRIL [Suspect]
     Indication: INSOMNIA
     Route: 048
     Dates: start: 20050101
  2. LEXOTAN [Suspect]
     Indication: DRUG USE FOR UNKNOWN INDICATION
     Route: 065
  3. LORAX [Suspect]
     Indication: DRUG USE FOR UNKNOWN INDICATION
     Route: 065

REACTIONS (3)
  - CONSTIPATION [None]
  - DRUG INEFFECTIVE [None]
  - VENOUS THROMBOSIS [None]
